FAERS Safety Report 15339728 (Version 2)
Quarter: 2018Q3

REPORT INFORMATION
  Report Type: Report from Study
  Country: CN (occurrence: CN)
  Receive Date: 20180831
  Receipt Date: 20180912
  Transmission Date: 20181010
  Serious: Yes (Hospitalization)
  Sender: FDA-Public Use
  Company Number: CN-ELI_LILLY_AND_COMPANY-CN201805012650

PATIENT
  Age: 40 Year
  Sex: Female

DRUGS (2)
  1. INSULIN, HUMAN [Suspect]
     Active Substance: INSULIN HUMAN
     Indication: DIABETES MELLITUS
     Dosage: 4 U, EACH MORNING
     Route: 058
     Dates: start: 2016
  2. INSULIN, HUMAN [Suspect]
     Active Substance: INSULIN HUMAN
     Dosage: 4 U, DAILY AT NIGHT
     Route: 058
     Dates: start: 2016

REACTIONS (4)
  - Blood glucose decreased [Unknown]
  - Generalised oedema [Unknown]
  - Malaise [Unknown]
  - Incorrect dose administered [Unknown]
